FAERS Safety Report 4818116-4 (Version None)
Quarter: 2005Q4

REPORT INFORMATION
  Report Type: 
  Country: None (occurrence: None)
  Receive Date: 20051101
  Receipt Date: 20051101
  Transmission Date: 20060501
  Serious: Yes (Hospitalization)
  Sender: FDA-Public Use
  Company Number: None

PATIENT
  Age: 81 Year
  Sex: Male
  Weight: 66.6788 kg

DRUGS (10)
  1. WARFARIN [Suspect]
     Indication: ATRIAL FIBRILLATION
     Dosage: VARIES BASED ON INR
     Dates: start: 20020101
  2. ATENOLOL [Concomitant]
  3. TAMULOSIN HCL [Concomitant]
  4. SIMVASTATIN [Concomitant]
  5. FUROSEMIDE [Concomitant]
  6. LISINOPRIL [Concomitant]
  7. RANITIDINE [Concomitant]
  8. FINASTERIDE [Concomitant]
  9. FERROUS SULFATE TAB [Concomitant]
  10. ASCORBIC ACID [Concomitant]

REACTIONS (1)
  - HAEMOPTYSIS [None]
